FAERS Safety Report 8548458-0 (Version None)
Quarter: 2012Q3

REPORT INFORMATION
  Report Type: 
  Country: None (occurrence: None)
  Receive Date: 20120719
  Receipt Date: 20120719
  Transmission Date: 20120928
  Serious: Yes (Other)
  Sender: FDA-Public Use
  Company Number: None

PATIENT
  Sex: Male

DRUGS (2)
  1. ZYTIGA [Suspect]
     Indication: PROSTATIC DISORDER
     Dosage: 1000MG QD PO
     Route: 048
     Dates: start: 20120212, end: 20120712
  2. . [Suspect]

REACTIONS (1)
  - PROSTATIC SPECIFIC ANTIGEN INCREASED [None]
